FAERS Safety Report 9216328 (Version 1)
Quarter: 2013Q2

REPORT INFORMATION
  Report Type: Spontaneous
  Country: BR (occurrence: None)
  Receive Date: 20130403
  Receipt Date: 20130403
  Transmission Date: 20140414
  Serious: Yes (Hospitalization)
  Sender: FDA-Public Use
  Company Number: DSU-2013-02530

PATIENT
  Age: 61 Year
  Sex: Female

DRUGS (3)
  1. OLMETEC HCT (HYDROCHLOROTHIAZIDE, OLMESARTAN MEDOXOMIL) (TABLET) (HYDROCHLOROTHIAZIDE, OLMESARTAN MEDOXOMIL) [Suspect]
     Indication: HYPERTENSION
     Dosage: 40/25 MG (QD), PER ORAL
     Route: 048
  2. LIPITOR [Suspect]
     Indication: BLOOD CHOLESTEROL INCREASED
     Dosage: 20 MG (20 MG, QD), PER ORAL
     Route: 048
  3. XALATAN (LATANOPROST) (LATANOPROST) [Concomitant]
     Dosage: 3 UG (ONE DROP IN EACH EYE)
     Dates: start: 201301

REACTIONS (7)
  - Herpes virus infection [None]
  - Vomiting [None]
  - Spinal pain [None]
  - Pain in extremity [None]
  - Arthralgia [None]
  - Spinal disorder [None]
  - Blood pressure increased [None]
